FAERS Safety Report 8291242-6 (Version None)
Quarter: 2012Q2

REPORT INFORMATION
  Report Type: 
  Country: None (occurrence: None)
  Receive Date: 20120417
  Receipt Date: 20120410
  Transmission Date: 20120825
  Serious: Yes (Other)
  Sender: FDA-Public Use
  Company Number: US-BAYER-2011-095542

PATIENT
  Age: 35 Year
  Sex: Female
  Weight: 91 kg

DRUGS (6)
  1. LEVAQUIN [Concomitant]
     Indication: EAR INFECTION
     Dosage: 500 MG, QD
     Dates: start: 20060209
  2. TRICOR [Concomitant]
     Indication: BLOOD TRIGLYCERIDES INCREASED
     Dosage: 48 MG, QD
     Route: 048
  3. YAZ [Suspect]
     Indication: CONTRACEPTION
     Dosage: UNK
     Dates: start: 20050401, end: 20060101
  4. EXPECTORANT AND DECONGESTANT (UNKNOWN NAME) [Concomitant]
     Dosage: 1TAB BID
     Route: 048
  5. YASMIN [Suspect]
     Indication: CONTRACEPTION
     Dosage: UNK
     Dates: start: 20050401, end: 20060101
  6. SYNTHROID [Concomitant]
     Indication: HYPOTHYROIDISM
     Dosage: 150 MCG/24HR, QD
     Route: 048

REACTIONS (6)
  - ANGER [None]
  - DEEP VEIN THROMBOSIS [None]
  - PAIN [None]
  - DEPRESSION [None]
  - PULMONARY EMBOLISM [None]
  - EMOTIONAL DISTRESS [None]
